FAERS Safety Report 8979226 (Version 1)
Quarter: 2012Q4

REPORT INFORMATION
  Report Type: Report from Study
  Country: DE (occurrence: DE)
  Receive Date: 20121221
  Receipt Date: 20121221
  Transmission Date: 20130627
  Serious: Yes (Hospitalization)
  Sender: FDA-Public Use
  Company Number: DE-GLAXOSMITHKLINE-B0854270A

PATIENT
  Age: 79 Year
  Sex: Female
  Weight: 62.4 kg

DRUGS (6)
  1. TOPOTECAN HYDROCHLORIDE [Suspect]
     Indication: OVARIAN CANCER
     Dosage: 2.01MG per day
     Route: 042
     Dates: start: 20110117
  2. BEVACIZUMAB [Suspect]
     Indication: OVARIAN CANCER
     Dosage: 936MG Every 3 weeks
     Route: 042
     Dates: start: 20110117
  3. PACLITAXEL [Suspect]
     Indication: OVARIAN CANCER
     Route: 065
  4. NOVOTHYRAL [Concomitant]
     Dosage: 75MCG per day
  5. RAMIPRIL [Concomitant]
     Dosage: 10MG per day
  6. TRAVATAN [Concomitant]
     Route: 047

REACTIONS (1)
  - Arterial occlusive disease [Recovered/Resolved]
